FAERS Safety Report 6927841-0 (Version None)
Quarter: 2010Q3

REPORT INFORMATION
  Report Type: 
  Country: None (occurrence: None)
  Receive Date: 20100817
  Receipt Date: 20100810
  Transmission Date: 20110219
  Serious: Yes (Other)
  Sender: FDA-Public Use
  Company Number: JP-PFIZER INC-2010079143

PATIENT
  Age: 34 Year
  Sex: Male

DRUGS (9)
  1. SOLU-MEDROL [Suspect]
     Indication: PROPHYLAXIS AGAINST TRANSPLANT REJECTION
     Dosage: 500 MG, 1X/DAY
     Route: 041
  2. TACROLIMUS [Concomitant]
     Indication: RENAL TRANSPLANT
     Dosage: UNK
  3. CELLCEPT [Concomitant]
     Dosage: UNK
     Route: 048
  4. URSO 250 [Concomitant]
     Dosage: UNK
     Route: 048
  5. GLYCYRON [Concomitant]
     Dosage: UNK
  6. ASPIRIN [Concomitant]
     Dosage: 10 MG, 1X/DAY
     Route: 048
  7. LENDORMIN [Concomitant]
     Dosage: UNK
     Route: 048
  8. THYRADIN [Concomitant]
     Dosage: 50 MG, 1X/DAY
     Route: 048
  9. RABEPRAZOLE SODIUM [Concomitant]
     Dosage: UNK
     Route: 048

REACTIONS (1)
  - DRUG LEVEL INCREASED [None]
